FAERS Safety Report 4933073-8 (Version None)
Quarter: 2006Q1

REPORT INFORMATION
  Report Type: 
  Country: None (occurrence: None)
  Receive Date: 20060302
  Receipt Date: 20060302
  Transmission Date: 20060701
  Serious: Yes (Hospitalization)
  Sender: FDA-Public Use
  Company Number: None

PATIENT
  Age: 57 Year
  Sex: Male

DRUGS (2)
  1. OXALIPLATIN [Suspect]
     Indication: COLON CANCER STAGE II
     Dosage: IV 11TH CYCLE
     Route: 042
  2. FLUOROURACIL [Suspect]
     Indication: COLON CANCER STAGE II
     Dosage: IV 11TH CYCLE
     Route: 042

REACTIONS (11)
  - BACTERAEMIA [None]
  - CLOSTRIDIUM COLITIS [None]
  - ESCHERICHIA URINARY TRACT INFECTION [None]
  - FATIGUE [None]
  - HAEMODIALYSIS [None]
  - PNEUMONITIS [None]
  - POST PROCEDURAL NAUSEA [None]
  - POST PROCEDURAL VOMITING [None]
  - PURULENCE [None]
  - PYREXIA [None]
  - RENAL FAILURE ACUTE [None]
